APPROVED DRUG PRODUCT: PERIACTIN
Active Ingredient: CYPROHEPTADINE HYDROCHLORIDE
Strength: 4MG **Federal Register determination that product was not discontinued or withdrawn for safety or effectiveness reasons**
Dosage Form/Route: TABLET;ORAL
Application: N012649 | Product #001
Applicant: MERCK AND CO INC
Approved: Approved Prior to Jan 1, 1982 | RLD: Yes | RS: No | Type: DISCN